FAERS Safety Report 21812646 (Version 1)
Quarter: 2022Q4

REPORT INFORMATION
  Report Type: Spontaneous
  Country: US (occurrence: None)
  Receive Date: 20221231
  Receipt Date: 20221231
  Transmission Date: 20230112
  Serious: Yes (unspecified)
  Sender: FDA-Public Use
  Company Number: None

PATIENT
  Age: 81 Year
  Sex: Female

DRUGS (12)
  1. OLANZAPINE [Suspect]
     Active Substance: OLANZAPINE
     Indication: Prophylaxis of nausea and vomiting
     Dosage: FREQUENCY : AT BEDTIME;?
     Route: 048
     Dates: start: 20221227, end: 20221228
  2. AMLODIPINE [Concomitant]
     Active Substance: AMLODIPINE BESYLATE
  3. JANUVIA [Concomitant]
     Active Substance: SITAGLIPTIN PHOSPHATE
  4. LEVOTHYROXINE [Concomitant]
     Active Substance: LEVOTHYROXINE
  5. PRAVASTATIN [Concomitant]
     Active Substance: PRAVASTATIN
  6. Blood glucose meter [Concomitant]
  7. DEVICE [Concomitant]
     Active Substance: DEVICE
  8. DEVICE [Concomitant]
     Active Substance: DEVICE
  9. ENOXAPARIN [Concomitant]
     Active Substance: ENOXAPARIN
  10. VITAMIN C [Concomitant]
     Active Substance: ASCORBIC ACID
  11. VITAMIN D3 [Concomitant]
     Active Substance: CHOLECALCIFEROL
  12. VITAMIN E [Concomitant]
     Active Substance: .ALPHA.-TOCOPHEROL

REACTIONS (6)
  - Swollen tongue [None]
  - Tongue discolouration [None]
  - Tongue rough [None]
  - Sinus headache [None]
  - Constipation [None]
  - Urinary tract disorder [None]

NARRATIVE: CASE EVENT DATE: 20221228
